FAERS Safety Report 5548674-6 (Version None)
Quarter: 2007Q4

REPORT INFORMATION
  Report Type: 
  Country: None (occurrence: None)
  Receive Date: 20071211
  Receipt Date: 20070404
  Transmission Date: 20080405
  Serious: No
  Sender: FDA-Public Use
  Company Number: US-AMGEN-KDL218219

PATIENT
  Sex: Female

DRUGS (5)
  1. ENBREL [Suspect]
     Indication: DRUG USE FOR UNKNOWN INDICATION
     Route: 058
     Dates: start: 20050201
  2. LOTENSIN [Concomitant]
  3. PROTONIX [Concomitant]
  4. DETROL [Concomitant]
  5. FOSAMAX [Concomitant]

REACTIONS (1)
  - INJECTION SITE ERYTHEMA [None]
